FAERS Safety Report 15272730 (Version 1)
Quarter: 2018Q3

REPORT INFORMATION
  Report Type: Spontaneous
  Country: GB (occurrence: GB)
  Receive Date: 20180813
  Receipt Date: 20180813
  Transmission Date: 20181010
  Serious: Yes (Life-Threatening, Hospitalization)
  Sender: FDA-Public Use
  Company Number: GB-TEVA-2018-GB-939347

PATIENT
  Age: 39 Year
  Sex: Female
  Weight: 87 kg

DRUGS (5)
  1. VANCOMYCIN [Suspect]
     Active Substance: VANCOMYCIN
     Dosage: 1250 MG/TWICE DAILY
     Route: 042
     Dates: start: 20180130, end: 20180203
  2. ASPIRIN. [Concomitant]
     Active Substance: ASPIRIN
     Indication: THROMBOSIS PROPHYLAXIS
     Dosage: ONCE DAILY
     Route: 048
     Dates: start: 20180117
  3. VANCOMYCIN [Suspect]
     Active Substance: VANCOMYCIN
     Indication: ARTHRITIS INFECTIVE
     Dosage: 1250 MG/TWICE DAILY
     Route: 042
     Dates: start: 20180130, end: 20180203
  4. RIFAMPICIN [Concomitant]
     Active Substance: RIFAMPIN
     Indication: ARTHRITIS INFECTIVE
     Dosage: TWICE DAILY
     Route: 048
     Dates: start: 20180130
  5. DESOGESTREL [Concomitant]
     Active Substance: DESOGESTREL
     Indication: CONTRACEPTION
     Dosage: 75 MICROGRAM DAILY;
     Route: 048

REACTIONS (4)
  - Pyrexia [Recovering/Resolving]
  - Red man syndrome [Recovering/Resolving]
  - Influenza like illness [Recovering/Resolving]
  - Tachycardia [Recovering/Resolving]

NARRATIVE: CASE EVENT DATE: 20180201
